FAERS Safety Report 7724343-9 (Version None)
Quarter: 2011Q3

REPORT INFORMATION
  Report Type: 
  Country: None (occurrence: None)
  Receive Date: 20110901
  Receipt Date: 20110822
  Transmission Date: 20111222
  Serious: Yes (Hospitalization, Other)
  Sender: FDA-Public Use
  Company Number: US-JNJFOC-20110708349

PATIENT
  Sex: Female
  Weight: 69.85 kg

DRUGS (5)
  1. GABAPENTIN [Concomitant]
     Indication: HEADACHE
  2. SIMPONI [Suspect]
     Route: 058
     Dates: start: 20110601
  3. SIMPONI [Suspect]
     Indication: RHEUMATOID ARTHRITIS
     Route: 058
     Dates: start: 20110501
  4. METHOTREXATE [Concomitant]
  5. SULFASALAZINE [Concomitant]

REACTIONS (1)
  - HEADACHE [None]
